FAERS Safety Report 15264467 (Version 1)
Quarter: 2018Q3

REPORT INFORMATION
  Report Type: Spontaneous
  Country: JP (occurrence: JP)
  Receive Date: 20180810
  Receipt Date: 20180810
  Transmission Date: 20181010
  Serious: Yes (Death)
  Sender: FDA-Public Use
  Company Number: JP-OTSUKA-2018_026018

PATIENT

DRUGS (1)
  1. ABILIFY MAINTENA [Suspect]
     Active Substance: ARIPIPRAZOLE
     Indication: DEPRESSION
     Dosage: 300 MG, UNK
     Route: 030

REACTIONS (3)
  - Product use in unapproved indication [Unknown]
  - Death [Fatal]
  - Parkinsonism [Unknown]
